FAERS Safety Report 14605182 (Version 1)
Quarter: 2018Q1

REPORT INFORMATION
  Report Type: Spontaneous
  Country: US (occurrence: US)
  Receive Date: 20180306
  Receipt Date: 20180306
  Transmission Date: 20180509
  Serious: Yes (Hospitalization)
  Sender: FDA-Public Use
  Company Number: US-TAKEDA-2018MPI002216

PATIENT
  Age: 67 Year
  Sex: Male
  Weight: 70.3 kg

DRUGS (1)
  1. NINLARO [Suspect]
     Active Substance: IXAZOMIB CITRATE
     Indication: HEAVY CHAIN DISEASE
     Dosage: 4 MG, 1/WEEK
     Route: 048
     Dates: start: 20170809

REACTIONS (8)
  - Retching [Unknown]
  - Vomiting [Unknown]
  - Fluid retention [Unknown]
  - Heart rate increased [Unknown]
  - Dyspepsia [Unknown]
  - Upper-airway cough syndrome [Unknown]
  - Feeling abnormal [Unknown]
  - Off label use [Unknown]

NARRATIVE: CASE EVENT DATE: 20170809
